FAERS Safety Report 5903079-0 (Version None)
Quarter: 2008Q3

REPORT INFORMATION
  Report Type: 
  Country: None (occurrence: None)
  Receive Date: 20080926
  Receipt Date: 20080911
  Transmission Date: 20090109
  Serious: Yes (Other)
  Sender: FDA-Public Use
  Company Number: STI-2008-02930

PATIENT
  Age: 46 Year
  Sex: Male

DRUGS (1)
  1. HYDROCORTISONE [Suspect]
     Dosage: CONTINUOUS 200MG/DAY

REACTIONS (5)
  - DISEASE RECURRENCE [None]
  - HYPERNATRAEMIA [None]
  - MENTAL DISORDER [None]
  - NERVOUS SYSTEM DISORDER [None]
  - SEPTIC SHOCK [None]
